FAERS Safety Report 6767510-3 (Version None)
Quarter: 2010Q2

REPORT INFORMATION
  Report Type: 
  Country: None (occurrence: None)
  Receive Date: 20100614
  Receipt Date: 20100601
  Transmission Date: 20101027
  Serious: No
  Sender: FDA-Public Use
  Company Number: US-B.I. PHARMACEUTICALS,INC./RIDGEFIELD-2010-BP-06196BP

PATIENT
  Age: 77 Year
  Sex: Male

DRUGS (1)
  1. FLOMAX [Suspect]
     Indication: POLLAKIURIA
     Dosage: 0.4 MG
     Route: 048
     Dates: start: 20100501

REACTIONS (5)
  - BACK PAIN [None]
  - HYPOKINESIA [None]
  - INSOMNIA [None]
  - NASAL CONGESTION [None]
  - PRURITUS [None]
